FAERS Safety Report 19871714 (Version 3)
Quarter: 2022Q3

REPORT INFORMATION
  Report Type: Report from Study
  Country: CA (occurrence: CA)
  Receive Date: 20210923
  Receipt Date: 20220822
  Transmission Date: 20221027
  Serious: Yes (Hospitalization, Other)
  Sender: FDA-Public Use
  Company Number: CA-JNJFOC-20210818717

PATIENT
  Age: 60 Year
  Sex: Female

DRUGS (1)
  1. REMICADE [Suspect]
     Active Substance: INFLIXIMAB
     Indication: Crohn^s disease
     Dosage: INFUSION RECEIVED ON 09-AUG-2021, 17-SEP-2021.?EXPIRY DATE: 31-OCT-2024. BATCH: MBM81013
     Route: 042

REACTIONS (6)
  - Abscess [Unknown]
  - Fistula [Recovering/Resolving]
  - Intestinal resection [Recovering/Resolving]
  - Sinusitis [Recovering/Resolving]
  - Wound [Not Recovered/Not Resolved]
  - Seasonal allergy [Unknown]

NARRATIVE: CASE EVENT DATE: 20210801
